FAERS Safety Report 8699286 (Version 3)
Quarter: 2012Q4

REPORT INFORMATION
  Report Type: 
  Country: IE (occurrence: IE)
  Receive Date: 20120802
  Receipt Date: 20121008
  Transmission Date: 20130627
  Serious: Yes (Death, Other)
  Sender: FDA-Public Use
  Company Number: IE-B.I. PHARMACEUTICALS,INC./RIDGEFIELD-2012-UK-00884UK

PATIENT
  Age: 86 Year
  Sex: Female
  Weight: 67 kg

DRUGS (8)
  1. PRADAXA [Suspect]
     Indication: THROMBOSIS PROPHYLAXIS
     Dosage: 220 mg
     Route: 048
     Dates: start: 20120520, end: 20120618
  2. BETAHISTINE [Concomitant]
     Indication: VERTIGO
     Dosage: 16 mg
  3. NITROFURANTOIN [Concomitant]
     Indication: URINARY TRACT INFECTION
     Dosage: 100 mg
  4. PANTOPRAZOLE [Concomitant]
     Indication: GASTRITIS
     Dosage: 40 mg
  5. ARICEPT [Concomitant]
     Dosage: 10 mg
     Dates: end: 20120528
  6. PERINDOPRIL [Concomitant]
     Indication: HYPERTENSION
     Dosage: 5 mg
     Dates: end: 20120528
  7. FEMARA [Concomitant]
     Indication: BREAST CANCER
     Dosage: 2.5 mg
     Dates: end: 20120528
  8. KLACID [Concomitant]
     Indication: INFECTION
     Dosage: 500 mg
     Dates: start: 20120609, end: 20120613

REACTIONS (2)
  - Pulmonary embolism [Fatal]
  - Haematuria [Not Recovered/Not Resolved]
